FAERS Safety Report 6102190-1 (Version None)
Quarter: 2009Q1

REPORT INFORMATION
  Report Type: 
  Country: None (occurrence: None)
  Receive Date: 20090227
  Receipt Date: 20080305
  Transmission Date: 20090719
  Serious: Yes (Hospitalization)
  Sender: FDA-Public Use
  Company Number: 552244

PATIENT
  Age: 15 Year
  Sex: Female
  Weight: 60.5 kg

DRUGS (6)
  1. ACCUTANE [Suspect]
     Indication: ACNE
     Dosage: 10 MG
     Dates: start: 19980721, end: 20020416
  2. ORTHO TRI-CYCLEN [Concomitant]
  3. LEXAPRO [Concomitant]
  4. WELLBUTRIN [Concomitant]
  5. REMERON [Concomitant]
  6. PAXIL [Concomitant]

REACTIONS (21)
  - ALOPECIA [None]
  - ANAEMIA [None]
  - APHTHOUS STOMATITIS [None]
  - ARTHRALGIA [None]
  - BLOOD ALKALINE PHOSPHATASE INCREASED [None]
  - BLOOD TRIGLYCERIDES INCREASED [None]
  - CHAPPED LIPS [None]
  - COLITIS ULCERATIVE [None]
  - DEPRESSION [None]
  - DRY SKIN [None]
  - EPISTAXIS [None]
  - FULL BLOOD COUNT DECREASED [None]
  - INFLAMMATORY BOWEL DISEASE [None]
  - IRRITABLE BOWEL SYNDROME [None]
  - LIP DRY [None]
  - MYALGIA [None]
  - NEPHROLITHIASIS [None]
  - PAIN IN JAW [None]
  - PANCREATITIS [None]
  - PANCYTOPENIA [None]
  - WEIGHT DECREASED [None]
